FAERS Safety Report 22163763 (Version 1)
Quarter: 2023Q2

REPORT INFORMATION
  Report Type: Spontaneous
  Country: IS (occurrence: IS)
  Receive Date: 20230401
  Receipt Date: 20230401
  Transmission Date: 20230722
  Serious: Yes (Hospitalization, Other)
  Sender: FDA-Public Use
  Company Number: None

PATIENT
  Age: 44 Year
  Sex: Female

DRUGS (2)
  1. DICLOXACILLIN [Suspect]
     Active Substance: DICLOXACILLIN
     Indication: Infection prophylaxis
     Dosage: 4500 MILLIGRAM DAILY; 3 CAPSULES 3 TIMES PER DAY, TREATMENT ENDED ON THE 2 OR 3RD OF NOVEMBER
     Route: 065
     Dates: start: 20221023, end: 202211
  2. IRON [Concomitant]
     Active Substance: IRON
     Indication: Anaemia

REACTIONS (3)
  - Bacterial infection [Recovering/Resolving]
  - Maternal exposure during pregnancy [Unknown]
  - Abortion spontaneous [Recovering/Resolving]
